FAERS Safety Report 10561424 (Version 1)
Quarter: 2014Q4

REPORT INFORMATION
  Report Type: Spontaneous
  Country: US (occurrence: US)
  Receive Date: 20141103
  Receipt Date: 20141103
  Transmission Date: 20150529
  Serious: Yes (Life-Threatening, Hospitalization)
  Sender: FDA-Public Use
  Company Number: US-BAYER-2014-158162

PATIENT
  Age: 53 Year
  Sex: Male
  Weight: 100 kg

DRUGS (2)
  1. BAYER GENUINE ASPIRIN [Suspect]
     Active Substance: ASPIRIN
     Indication: CHEST PAIN
     Dosage: UNK
     Route: 048
     Dates: start: 20141017, end: 20141017
  2. BAYER GENUINE ASPIRIN [Suspect]
     Active Substance: ASPIRIN
     Indication: CHEST PAIN
     Dosage: UNK
     Dates: start: 201410

REACTIONS (4)
  - Extra dose administered [None]
  - Cardiac arrest [None]
  - Stent placement [None]
  - Syncope [None]

NARRATIVE: CASE EVENT DATE: 20141017
